FAERS Safety Report 6570723-7 (Version None)
Quarter: 2010Q1

REPORT INFORMATION
  Report Type: 
  Country: None (occurrence: None)
  Receive Date: 20100204
  Receipt Date: 20100129
  Transmission Date: 20100710
  Serious: Yes (Hospitalization)
  Sender: FDA-Public Use
  Company Number: B0624824A

PATIENT
  Sex: Male

DRUGS (3)
  1. ACYCLOVIR [Suspect]
     Indication: ENCEPHALITIS HERPES
     Dosage: 30MGKD PER DAY
     Route: 042
     Dates: start: 20091217, end: 20091228
  2. ROCEPHIN [Concomitant]
     Dosage: 1.2G PER DAY
     Route: 042
  3. DEPAKIN [Concomitant]
     Route: 048

REACTIONS (2)
  - DISEASE PROGRESSION [None]
  - DRUG INEFFECTIVE [None]
